FAERS Safety Report 6853376-X (Version None)
Quarter: 2010Q3

REPORT INFORMATION
  Report Type: 
  Country: None (occurrence: None)
  Receive Date: 20100717
  Receipt Date: 20071205
  Transmission Date: 20110219
  Serious: No
  Sender: FDA-Public Use
  Company Number: US-PFIZER INC-2007104125

PATIENT
  Sex: Female
  Weight: 90.909 kg

DRUGS (9)
  1. CHANTIX [Suspect]
     Indication: SMOKING CESSATION THERAPY
     Dates: start: 20071112
  2. GLIMEPIRIDE [Concomitant]
     Indication: DIABETES MELLITUS
  3. CARDIZEM [Concomitant]
  4. IBUPROFEN [Concomitant]
  5. FUROSEMIDE [Concomitant]
  6. CARTIA XT [Concomitant]
  7. OMEPRAZOLE [Concomitant]
  8. AMBIEN [Concomitant]
     Indication: SLEEP DISORDER
  9. TRAMADOL [Concomitant]
     Indication: PAIN

REACTIONS (5)
  - CHEST DISCOMFORT [None]
  - COUGH [None]
  - THROAT IRRITATION [None]
  - VOMITING [None]
  - WHEEZING [None]
